FAERS Safety Report 7353115-2 (Version None)
Quarter: 2011Q1

REPORT INFORMATION
  Report Type: 
  Country: None (occurrence: None)
  Receive Date: 20110315
  Receipt Date: 20110301
  Transmission Date: 20110831
  Serious: Yes (Hospitalization, Other)
  Sender: FDA-Public Use
  Company Number: US-ELI_LILLY_AND_COMPANY-US201103001375

PATIENT
  Age: 89 Year
  Sex: Female

DRUGS (1)
  1. ALIMTA [Suspect]
     Indication: BLADDER CANCER
     Dosage: 500 MG/M2, UNK

REACTIONS (6)
  - PANCYTOPENIA [None]
  - OFF LABEL USE [None]
  - PNEUMONIA [None]
  - PRURITUS [None]
  - CHEST PAIN [None]
  - NAUSEA [None]
